FAERS Safety Report 4838549-X (Version None)
Quarter: 2005Q4

REPORT INFORMATION
  Report Type: 
  Country: None (occurrence: None)
  Receive Date: 20051123
  Receipt Date: 20051123
  Transmission Date: 20060501
  Serious: No
  Sender: FDA-Public Use
  Company Number: None

PATIENT
  Age: 25 Year
  Sex: Male

DRUGS (11)
  1. SODIUM NITROPRUSSIDE [Suspect]
     Dosage: 3-7 MCG/KG/MIN
     Dates: start: 20051007
  2. AMLODIPINE [Concomitant]
  3. UNASYN [Concomitant]
  4. CLONIDINE [Concomitant]
  5. ENALAPRIL [Concomitant]
  6. ESMOLOL HCL [Concomitant]
  7. FUROSEMIDE [Concomitant]
  8. LABETOLOL [Concomitant]
  9. METOCLOPRAMIDE [Concomitant]
  10. NITROGLYCERIN [Concomitant]
  11. RANITIDINE [Concomitant]

REACTIONS (1)
  - OXYGEN SATURATION DECREASED [None]
